FAERS Safety Report 6709951-6 (Version None)
Quarter: 2010Q2

REPORT INFORMATION
  Report Type: 
  Country: None (occurrence: None)
  Receive Date: 20100503
  Receipt Date: 20100503
  Transmission Date: 20101027
  Serious: No
  Sender: FDA-Public Use
  Company Number: None

PATIENT
  Age: 6 Year
  Sex: Female
  Weight: 40.3701 kg

DRUGS (1)
  1. MOTRIN [Suspect]
     Indication: INJURY
     Dosage: 3 TSP EVERY 6 HOURS PO
     Route: 048
     Dates: start: 20100420, end: 20100424

REACTIONS (2)
  - DRUG INEFFECTIVE [None]
  - PRODUCT QUALITY ISSUE [None]
